FAERS Safety Report 9389915 (Version 2)
Quarter: 2013Q3

REPORT INFORMATION
  Report Type: Spontaneous
  Country: US (occurrence: US)
  Receive Date: 20130708
  Receipt Date: 20130730
  Transmission Date: 20140515
  Serious: Yes (Hospitalization, Congenital Anomaly, Other)
  Sender: FDA-Public Use
  Company Number: US-UCBSA-090805

PATIENT
  Age: 0 None
  Sex: Female
  Weight: 3.8 kg

DRUGS (12)
  1. KEPPRA XR [Suspect]
     Indication: CONVULSION
     Route: 064
     Dates: start: 2009, end: 20100401
  2. TOPOMAX [Concomitant]
     Route: 064
     Dates: end: 201302
  3. SEROQUEL [Concomitant]
     Indication: ANXIETY
     Route: 064
     Dates: end: 201302
  4. KLONOPIN [Concomitant]
     Route: 064
  5. ELAVIL [Concomitant]
     Route: 064
     Dates: end: 2012
  6. DEPAKOTE [Concomitant]
     Route: 064
  7. LASIX [Concomitant]
     Route: 064
  8. PULMICORT [Concomitant]
     Indication: ASTHMA
     Route: 064
  9. NASONEX [Concomitant]
     Indication: RHINITIS ALLERGIC
     Route: 064
  10. ZANTAC [Concomitant]
     Indication: GASTROOESOPHAGEAL REFLUX DISEASE
     Route: 064
  11. CETIRIZINE [Concomitant]
     Indication: RHINITIS ALLERGIC
     Route: 064
  12. SINGULAIR [Concomitant]
     Indication: RHINITIS ALLERGIC
     Route: 064

REACTIONS (8)
  - Premature baby [Unknown]
  - Congenital megacolon [Unknown]
  - Atrial septal defect [Not Recovered/Not Resolved]
  - Trisomy 21 [Not Recovered/Not Resolved]
  - Gastrointestinal injury [Unknown]
  - Suture rupture [Recovered/Resolved]
  - Oxygen saturation decreased [Unknown]
  - Foetal exposure during pregnancy [Recovered/Resolved]
